FAERS Safety Report 6268479-0 (Version None)
Quarter: 2009Q3

REPORT INFORMATION
  Report Type: 
  Country: None (occurrence: None)
  Receive Date: 20090715
  Receipt Date: 20090707
  Transmission Date: 20100115
  Serious: Yes (Other)
  Sender: FDA-Public Use
  Company Number: US-JNJFOC-20090703026

PATIENT
  Sex: Female
  Weight: 65.77 kg

DRUGS (13)
  1. REMICADE [Suspect]
     Dosage: FREQUENCY APPROXIMATELY EVERY 2 MONTHS
     Route: 042
  2. REMICADE [Suspect]
     Dosage: FREQUENCY APPROXIMATELY EVERY 2 MONTHS
     Route: 042
  3. REMICADE [Suspect]
     Dosage: FREQUENCY APPROXIMATELY EVERY 2 MONTHS
     Route: 042
  4. REMICADE [Suspect]
     Route: 042
  5. REMICADE [Suspect]
     Route: 042
  6. REMICADE [Suspect]
     Indication: CROHN'S DISEASE
     Dosage: 1 DOSE PRIOR TO REGISTRATION
     Route: 042
  7. ANTIBIOTICS [Suspect]
     Indication: CROHN'S DISEASE
  8. ANTIBIOTICS [Suspect]
     Indication: CELLULITIS
  9. ADALIMUMAB [Suspect]
     Indication: CROHN'S DISEASE
  10. QUESTRAN [Concomitant]
  11. PRILOSEC [Concomitant]
  12. MULTI-VITAMINS [Concomitant]
  13. UNSPECIFIED NARCOTIC [Concomitant]

REACTIONS (3)
  - CELLULITIS [None]
  - FALL [None]
  - OESOPHAGEAL CANDIDIASIS [None]
